FAERS Safety Report 12882804 (Version 1)
Quarter: 2016Q4

REPORT INFORMATION
  Report Type: Spontaneous
  Country: US (occurrence: US)
  Receive Date: 20161025
  Receipt Date: 20161025
  Transmission Date: 20170207
  Serious: Yes (Other)
  Sender: FDA-Public Use
  Company Number: US-BAYER-2016-199057

PATIENT
  Age: 56 Year
  Sex: Female

DRUGS (1)
  1. BETASERON [Suspect]
     Active Substance: INTERFERON BETA-1B
     Dosage: 1 ML, QOD, RECONSTITUTE WITH 1.2 ML DILUENT
     Route: 058

REACTIONS (4)
  - Viral infection [None]
  - Shock [None]
  - Influenza like illness [None]
  - Nausea [None]

NARRATIVE: CASE EVENT DATE: 201609
